FAERS Safety Report 10034231 (Version 1)
Quarter: 2014Q1

REPORT INFORMATION
  Report Type: Spontaneous
  Country: US (occurrence: None)
  Receive Date: 20140324
  Receipt Date: 20140324
  Transmission Date: 20141002
  Serious: Yes (Life-Threatening, Hospitalization)
  Sender: FDA-Public Use
  Company Number: None

PATIENT
  Age: 76 Year
  Sex: Male
  Weight: 71.8 kg

DRUGS (1)
  1. CEFAZOLIN [Suspect]
     Indication: SURGERY
     Route: 042
     Dates: start: 20131108, end: 20131110

REACTIONS (2)
  - Neutropenia [None]
  - No therapeutic response [None]
